FAERS Safety Report 6921578-X (Version None)
Quarter: 2010Q3

REPORT INFORMATION
  Report Type: 
  Country: None (occurrence: None)
  Receive Date: 20100812
  Receipt Date: 20100615
  Transmission Date: 20110219
  Serious: No
  Sender: FDA-Public Use
  Company Number: US-BAYER-201026563NA

PATIENT
  Age: 72 Year
  Sex: Female
  Weight: 49 kg

DRUGS (5)
  1. ULTRAVIST 300 [Suspect]
     Indication: COMPUTERISED TOMOGRAM ABDOMEN
     Dosage: AS USED: 73 ML  UNIT DOSE: 200 ML
     Route: 042
     Dates: start: 20100615, end: 20100615
  2. VOLUVEN [Concomitant]
     Indication: COMPUTERISED TOMOGRAM ABDOMEN
     Route: 048
     Dates: start: 20100615, end: 20100615
  3. ATENOLOL [Concomitant]
  4. BENACAN [Concomitant]
  5. PREDNISONE TAB [Concomitant]
     Indication: PREMEDICATION
     Dosage: AS USED: 50 MG
     Route: 048
     Dates: start: 20100614, end: 20100615

REACTIONS (2)
  - THROAT TIGHTNESS [None]
  - URTICARIA [None]
